FAERS Safety Report 8586695-X (Version None)
Quarter: 2012Q3

REPORT INFORMATION
  Report Type: 
  Country: None (occurrence: None)
  Receive Date: 20120810
  Receipt Date: 20120731
  Transmission Date: 20120928
  Serious: Yes (Death)
  Sender: FDA-Public Use
  Company Number: TW-CELGENEUS-153-20785-11062432

PATIENT

DRUGS (1)
  1. THALIDOMIDE [Suspect]
     Dosage: 100 MILLIGRAM
     Route: 048

REACTIONS (10)
  - SOMNOLENCE [None]
  - THROMBOCYTOPENIA [None]
  - ASTHENIA [None]
  - DYSPNOEA [None]
  - DIZZINESS [None]
  - LEUKOPENIA [None]
  - HYPOCALCAEMIA [None]
  - DEATH [None]
  - CONSTIPATION [None]
  - RASH [None]
